FAERS Safety Report 16961941 (Version 1)
Quarter: 2019Q4

REPORT INFORMATION
  Report Type: Report from Study
  Country: GB (occurrence: GB)
  Receive Date: 20191025
  Receipt Date: 20191025
  Transmission Date: 20200122
  Serious: Yes (Hospitalization)
  Sender: FDA-Public Use
  Company Number: PHHY2019GB151864

PATIENT
  Age: 53 Year
  Sex: Female

DRUGS (2)
  1. SANDOSTATIN LAR DEPOT [Suspect]
     Active Substance: OCTREOTIDE ACETATE
     Indication: NEUROENDOCRINE TUMOUR
     Dosage: 30 MG, EVERY 21 DAYS
     Route: 030
     Dates: start: 20181130
  2. SANDOSTATIN [Suspect]
     Active Substance: OCTREOTIDE ACETATE
     Indication: NEUROENDOCRINE TUMOUR
     Dosage: UNK
     Route: 065

REACTIONS (7)
  - Herpes zoster [Recovered/Resolved]
  - Renal impairment [Recovering/Resolving]
  - Sepsis [Recovered/Resolved]
  - Blood glucose increased [Recovering/Resolving]
  - Fluid overload [Recovering/Resolving]
  - Inappropriate schedule of product administration [Unknown]
  - Urine electrolytes abnormal [Recovering/Resolving]

NARRATIVE: CASE EVENT DATE: 20190528
